FAERS Safety Report 24256784 (Version 1)
Quarter: 2024Q3

REPORT INFORMATION
  Report Type: Spontaneous
  Country: CN (occurrence: CN)
  Receive Date: 20240828
  Receipt Date: 20240828
  Transmission Date: 20241017
  Serious: Yes (Hospitalization)
  Sender: BEIGENE
  Company Number: CN-BEIGENE-BGN-2024-013076

PATIENT

DRUGS (8)
  1. TISLELIZUMAB [Suspect]
     Active Substance: TISLELIZUMAB
     Indication: Nonkeratinising carcinoma of nasopharynx
     Dosage: 200 MILLIGRAM
     Route: 041
     Dates: start: 20240729
  2. FLUOROURACIL [Suspect]
     Active Substance: FLUOROURACIL
     Indication: Nonkeratinising carcinoma of nasopharynx
     Dosage: 5 GRAM
     Dates: start: 20240730
  3. PACLITAXEL [Suspect]
     Active Substance: PACLITAXEL
     Indication: Nonkeratinising carcinoma of nasopharynx
     Dosage: 370 MILLIGRAM
     Route: 041
     Dates: start: 20240730
  4. LOBAPLATIN [Suspect]
     Active Substance: LOBAPLATIN
     Indication: Nonkeratinising carcinoma of nasopharynx
     Dosage: 65 MILLIGRAM
     Route: 041
     Dates: start: 20240730
  5. SODIUM CHLORIDE [Concomitant]
     Active Substance: SODIUM CHLORIDE
     Indication: Vehicle solution use
     Dosage: 100 MILLILITER, QD
     Route: 041
     Dates: start: 20240729, end: 20240729
  6. SODIUM CHLORIDE [Concomitant]
     Active Substance: SODIUM CHLORIDE
     Dosage: 100 MILLILITER, QD
     Route: 041
     Dates: start: 20240730, end: 20240730
  7. SODIUM CHLORIDE [Concomitant]
     Active Substance: SODIUM CHLORIDE
     Dosage: 200 MILLILITER
     Dates: start: 20240730, end: 20240731
  8. DEXTROSE [Concomitant]
     Active Substance: DEXTROSE\DEXTROSE MONOHYDRATE
     Indication: Vehicle solution use
     Dosage: 500 MILLILITER, QD
     Route: 041
     Dates: start: 20240730, end: 20240730

REACTIONS (1)
  - Myelosuppression [Recovering/Resolving]

NARRATIVE: CASE EVENT DATE: 20240810
